FAERS Safety Report 11587084 (Version 2)
Quarter: 2015Q4

REPORT INFORMATION
  Report Type: Spontaneous
  Country: ES (occurrence: ES)
  Receive Date: 20151001
  Receipt Date: 20151007
  Transmission Date: 20160304
  Serious: Yes (Death, Other)
  Sender: FDA-Public Use
  Company Number: ES-TEVA-597035ISR

PATIENT

DRUGS (2)
  1. CICLOSPORIN [Suspect]
     Active Substance: CYCLOSPORINE
     Indication: SALVAGE THERAPY
     Route: 065
  2. SIROLIMUS. [Suspect]
     Active Substance: SIROLIMUS
     Indication: SALVAGE THERAPY
     Dosage: 2 MILLIGRAM DAILY;
     Route: 048

REACTIONS (3)
  - Thrombotic microangiopathy [Not Recovered/Not Resolved]
  - Graft versus host disease [Fatal]
  - Multi-organ failure [Fatal]
